FAERS Safety Report 4816232-4 (Version None)
Quarter: 2005Q4

REPORT INFORMATION
  Report Type: 
  Country: None (occurrence: None)
  Receive Date: 20051026
  Receipt Date: 20051012
  Transmission Date: 20060501
  Serious: Yes (Hospitalization)
  Sender: FDA-Public Use
  Company Number: CAP05000317

PATIENT
  Age: 80 Year
  Sex: Male

DRUGS (15)
  1. DIDROCAL(ETIDRONATE DISODIUM/CALCIUM CARBONATE CYCLICAL) TABLET, 400/1 [Suspect]
     Dosage: 1 TABLET ONCE DAILY FOR 90 DAYS, ORAL
     Route: 048
     Dates: start: 20040101, end: 20051001
  2. FLOVENT [Concomitant]
  3. OXEZE (FORMOTEROL FUMARATE) [Concomitant]
  4. SPIRIVA [Concomitant]
  5. VENTOLIN   /00139501/(SALBUTAMOL) [Concomitant]
  6. ADALAT XL (NIFEDIPINE) [Concomitant]
  7. CORGARD [Concomitant]
  8. METFORMIN HCL [Concomitant]
  9. DIABETA [Concomitant]
  10. ALLOPURINOL [Concomitant]
  11. IMOVANE (ZOPICLONE) [Concomitant]
  12. CALCIUM WITH VITAMIN D (ERGOCALCIFEROL, CALCIUM SODIUM LACTATE, CALCIU [Concomitant]
  13. BECONASE (BECLOMETASONE DIPROPIONATE) [Concomitant]
  14. GLYBURIDE [Concomitant]
  15. VALSARTAN [Concomitant]

REACTIONS (1)
  - PNEUMONIA [None]
